FAERS Safety Report 8262800 (Version 3)
Quarter: 2013Q4

REPORT INFORMATION
  Report Type: Spontaneous
  Country: US (occurrence: US)
  Receive Date: 20111124
  Receipt Date: 20131101
  Transmission Date: 20140711
  Serious: Yes (Hospitalization, Other)
  Sender: FDA-Public Use
  Company Number: US-ROCHE-1015939

PATIENT
  Sex: Male

DRUGS (2)
  1. ACCUTANE [Suspect]
     Indication: ACNE
     Route: 065
     Dates: start: 1998, end: 2000
  2. ACCUTANE [Suspect]
     Route: 065
     Dates: start: 20000626, end: 20001120

REACTIONS (3)
  - Inflammatory bowel disease [Unknown]
  - Injury [Unknown]
  - Colitis ulcerative [Unknown]
